FAERS Safety Report 18780274 (Version 1)
Quarter: 2021Q1

REPORT INFORMATION
  Report Type: Spontaneous
  Country: JP (occurrence: JP)
  Receive Date: 20210125
  Receipt Date: 20210125
  Transmission Date: 20210419
  Serious: Yes (Hospitalization)
  Sender: FDA-Public Use
  Company Number: NVSC2021JP013610

PATIENT
  Age: 74 Year
  Sex: Female

DRUGS (2)
  1. RECLAST [Suspect]
     Active Substance: ZOLEDRONIC ACID
     Indication: PRODUCT USED FOR UNKNOWN INDICATION
     Dosage: 5 MG, ONCE/SINGLE (5MG ONCE YEARLY)
     Route: 042
     Dates: start: 20170926
  2. RECLAST [Suspect]
     Active Substance: ZOLEDRONIC ACID
     Dosage: 5 MG, ONCE/SINGLE
     Route: 042
     Dates: start: 2020

REACTIONS (4)
  - Fracture [Unknown]
  - Dizziness [Unknown]
  - Pyrexia [Unknown]
  - Physical deconditioning [Unknown]

NARRATIVE: CASE EVENT DATE: 2020
